FAERS Safety Report 8819467 (Version 3)
Quarter: 2012Q4

REPORT INFORMATION
  Report Type: 
  Country: JP (occurrence: JP)
  Receive Date: 20121001
  Receipt Date: 20121026
  Transmission Date: 20130627
  Serious: Yes (Hospitalization, Other)
  Sender: FDA-Public Use
  Company Number: JP-AMGEN-JPNSP2012061277

PATIENT
  Age: 78 Year
  Sex: Female

DRUGS (9)
  1. ENBREL [Suspect]
     Indication: RHEUMATOID ARTHRITIS
     Dosage: 50 mg, weekly
     Route: 058
     Dates: start: 20110401, end: 20120914
  2. RHEUMATREX [Suspect]
     Indication: RHEUMATOID ARTHRITIS
     Dosage: 6 mg, weekly
     Route: 048
     Dates: start: 20101208, end: 20120927
  3. CELECOX [Concomitant]
     Indication: RHEUMATOID ARTHRITIS
     Dosage: 4 unit unknown per day
     Route: 048
     Dates: start: 20101207
  4. CYTOTEC [Concomitant]
     Indication: PROPHYLAXIS
     Dosage: 1 unit unknown per day
     Route: 048
     Dates: start: 20101207
  5. GLAKAY [Concomitant]
     Indication: OSTEOPOROSIS
     Dosage: 3 unit unknown per day
     Route: 048
     Dates: start: 20101207
  6. TEPRENONE [Concomitant]
     Indication: PROPHYLAXIS
     Dosage: 3 unit unknown per day
     Route: 048
     Dates: start: 20101207
  7. PREDNISOLONE [Concomitant]
     Indication: RHEUMATOID ARTHRITIS
     Dosage: 1.5 unit unknown per day
     Route: 048
     Dates: start: 20101207
  8. ROZEREM [Concomitant]
     Indication: INSOMNIA
     Dosage: 1 unit unknown per day
     Route: 048
     Dates: start: 20101207
  9. MYSLEE [Concomitant]
     Indication: INSOMNIA
     Dosage: 1 unit unknown per day
     Route: 048
     Dates: start: 20101207

REACTIONS (2)
  - Breast cancer [Not Recovered/Not Resolved]
  - Spinal pain [Unknown]
